FAERS Safety Report 22610980 (Version 1)
Quarter: 2023Q2

REPORT INFORMATION
  Report Type: Report from Study
  Country: AU (occurrence: AU)
  Receive Date: 20230616
  Receipt Date: 20230616
  Transmission Date: 20230721
  Serious: Yes (Hospitalization)
  Sender: FDA-Public Use
  Company Number: AU-GENMAB-2023-00700

PATIENT
  Age: 74 Year
  Sex: Male
  Weight: 60.7 kg

DRUGS (59)
  1. EPCORITAMAB [Suspect]
     Active Substance: EPCORITAMAB
     Indication: Mantle cell lymphoma stage IV
     Dosage: PRIMING DOSE: 0.16 MILLIGRAM, SINGLE
     Route: 058
     Dates: start: 20211122, end: 20211122
  2. EPCORITAMAB [Suspect]
     Active Substance: EPCORITAMAB
     Dosage: INTERMEDIATE DOSE: 0.8 MILLIGRAM, SINGLE
     Route: 058
     Dates: start: 20211129, end: 20211129
  3. EPCORITAMAB [Suspect]
     Active Substance: EPCORITAMAB
     Dosage: FULL DOSE: 48 MILLIGRAM, WEEKLY
     Route: 058
     Dates: start: 20211207, end: 20220211
  4. EPCORITAMAB [Suspect]
     Active Substance: EPCORITAMAB
     Dosage: FULL DOSE: 48 MILLIGRAM, 1Q2W
     Route: 058
     Dates: start: 20220218, end: 20220905
  5. EPCORITAMAB [Suspect]
     Active Substance: EPCORITAMAB
     Dosage: FULL DOSE: 48 MILLIGRAM, 1Q4W
     Route: 058
     Dates: start: 20220919, end: 20230308
  6. EPCORITAMAB [Suspect]
     Active Substance: EPCORITAMAB
     Dosage: REPRMD1: 0.16 MILLIGRAM, SINGLE
     Route: 058
     Dates: start: 20230515, end: 20230515
  7. EPCORITAMAB [Suspect]
     Active Substance: EPCORITAMAB
     Dosage: REPRMD8: 0.8 MILLIGRAM, SINGLE
     Route: 058
     Dates: start: 20230522, end: 20230522
  8. EPCORITAMAB [Suspect]
     Active Substance: EPCORITAMAB
     Dosage: REPRM: 48 MILLIGRAM, WEEKLY
     Route: 058
     Dates: start: 20230529, end: 20230605
  9. EPCORITAMAB [Suspect]
     Active Substance: EPCORITAMAB
     Dosage: 48 MILLIGRAM, MONTHLY
     Route: 058
     Dates: start: 20230613
  10. LORATADINE [Concomitant]
     Active Substance: LORATADINE
     Indication: Premedication
     Dosage: 10 MILLIGRAM, SINGLE
     Route: 048
     Dates: start: 20221017, end: 20221017
  11. LORATADINE [Concomitant]
     Active Substance: LORATADINE
     Dosage: 10 MILLIGRAM, SINGLE
     Route: 048
     Dates: start: 20221114, end: 20221114
  12. LORATADINE [Concomitant]
     Active Substance: LORATADINE
     Dosage: 10 MILLIGRAM, SINGLE
     Route: 048
     Dates: start: 20221212, end: 20221212
  13. LORATADINE [Concomitant]
     Active Substance: LORATADINE
     Dosage: 10 MILLIGRAM, SINGLE
     Route: 048
     Dates: start: 20230112, end: 20230112
  14. LORATADINE [Concomitant]
     Active Substance: LORATADINE
     Dosage: 10 MILLIGRAM, SINGLE
     Route: 048
     Dates: start: 20230206, end: 20230206
  15. LORATADINE [Concomitant]
     Active Substance: LORATADINE
     Dosage: 10 MILLIGRAM, SINGLE
     Route: 048
     Dates: start: 20230308, end: 20230308
  16. LORATADINE [Concomitant]
     Active Substance: LORATADINE
     Dosage: 10 MILLIGRAM, SINGLE
     Route: 048
     Dates: start: 20230515, end: 20230515
  17. LORATADINE [Concomitant]
     Active Substance: LORATADINE
     Dosage: 10 MILLIGRAM, SINGLE
     Route: 048
     Dates: start: 20230522, end: 20230522
  18. LORATADINE [Concomitant]
     Active Substance: LORATADINE
     Dosage: 10 MILLIGRAM, SINGLE
     Route: 048
     Dates: start: 20230529, end: 20230529
  19. LORATADINE [Concomitant]
     Active Substance: LORATADINE
     Dosage: 10 MILLIGRAM, SINGLE
     Route: 048
     Dates: start: 20230605, end: 20230605
  20. LORATADINE [Concomitant]
     Active Substance: LORATADINE
     Dosage: 10 MILLIGRAM, SINGLE
     Route: 048
     Dates: start: 20230613, end: 20230613
  21. ACETAMINOPHEN [Concomitant]
     Active Substance: ACETAMINOPHEN
     Indication: Premedication
     Dosage: 1 GRAM, SINGLE
     Route: 048
     Dates: start: 20221017, end: 20221017
  22. ACETAMINOPHEN [Concomitant]
     Active Substance: ACETAMINOPHEN
     Dosage: 1 GRAM, SINGLE
     Route: 048
     Dates: start: 20221114, end: 20221114
  23. ACETAMINOPHEN [Concomitant]
     Active Substance: ACETAMINOPHEN
     Dosage: 1 GRAM, SINGLE
     Route: 048
     Dates: start: 20221212, end: 20221212
  24. ACETAMINOPHEN [Concomitant]
     Active Substance: ACETAMINOPHEN
     Dosage: 1 GRAM, SINGLE
     Route: 048
     Dates: start: 20230112, end: 20230112
  25. ACETAMINOPHEN [Concomitant]
     Active Substance: ACETAMINOPHEN
     Dosage: 1 GRAM, SINGLE
     Route: 048
     Dates: start: 20230206, end: 20230206
  26. ACETAMINOPHEN [Concomitant]
     Active Substance: ACETAMINOPHEN
     Dosage: 1 GRAM, SINGLE
     Route: 048
     Dates: start: 20230308, end: 20230308
  27. ACETAMINOPHEN [Concomitant]
     Active Substance: ACETAMINOPHEN
     Dosage: 1 GRAM, SINGLE
     Route: 048
     Dates: start: 20230515, end: 20230515
  28. ACETAMINOPHEN [Concomitant]
     Active Substance: ACETAMINOPHEN
     Dosage: 1 GRAM, SINGLE
     Route: 048
     Dates: start: 20230522, end: 20230522
  29. ACETAMINOPHEN [Concomitant]
     Active Substance: ACETAMINOPHEN
     Dosage: 1 GRAM, SINGLE
     Route: 048
     Dates: start: 20230529, end: 20230529
  30. ACETAMINOPHEN [Concomitant]
     Active Substance: ACETAMINOPHEN
     Dosage: 1 GRAM, SINGLE
     Route: 048
     Dates: start: 20230605, end: 20230605
  31. ACETAMINOPHEN [Concomitant]
     Active Substance: ACETAMINOPHEN
     Dosage: 1 GRAM, SINGLE
     Route: 048
     Dates: start: 20230613, end: 20230613
  32. PREDNISOLONE [Concomitant]
     Active Substance: PREDNISOLONE
     Indication: Premedication
     Dosage: 100 MILLIGRAM, SINGLE
     Route: 048
     Dates: start: 20230515, end: 20230515
  33. PREDNISOLONE [Concomitant]
     Active Substance: PREDNISOLONE
     Indication: Prophylaxis
     Dosage: 100 MILLIGRAM, QD
     Route: 048
     Dates: start: 20230516, end: 20230518
  34. PREDNISOLONE [Concomitant]
     Active Substance: PREDNISOLONE
     Dosage: 100 MILLIGRAM, SINGLE
     Route: 048
     Dates: start: 20230522, end: 20230522
  35. PREDNISOLONE [Concomitant]
     Active Substance: PREDNISOLONE
     Dosage: 100 MILLIGRAM, QD
     Dates: start: 20230523, end: 20230525
  36. PREDNISOLONE [Concomitant]
     Active Substance: PREDNISOLONE
     Dosage: 100 MILLIGRAM, SINGLE
     Route: 048
     Dates: start: 20230529, end: 20230529
  37. PREDNISOLONE [Concomitant]
     Active Substance: PREDNISOLONE
     Dosage: 100 MILLIGRAM, QD
     Route: 048
     Dates: start: 20230530, end: 20230601
  38. PREDNISOLONE [Concomitant]
     Active Substance: PREDNISOLONE
     Dosage: 80 MILLIGRAM, SINGLE
     Route: 048
     Dates: start: 20230605, end: 20230605
  39. ALLOPURINOL [Concomitant]
     Active Substance: ALLOPURINOL
     Dosage: 150 MILLIGRAM, QD
     Route: 048
     Dates: start: 20220919
  40. AMIODARONE [Concomitant]
     Active Substance: AMIODARONE
     Indication: Sinus node dysfunction
     Dosage: 200 MILLIGRAM, QD
     Route: 048
     Dates: start: 20220919
  41. APIXABAN [Concomitant]
     Active Substance: APIXABAN
     Indication: Prophylaxis
     Dosage: 5 MILLIGRAM, BID
     Route: 048
     Dates: start: 20220919, end: 20221017
  42. APIXABAN [Concomitant]
     Active Substance: APIXABAN
     Dosage: 5 MILLIGRAM, QD
     Route: 048
     Dates: start: 20221018, end: 20230328
  43. ASPIRIN [Concomitant]
     Active Substance: ASPIRIN
     Indication: Sinus node dysfunction
     Dosage: 100 MILLIGRAM, QD
     Route: 048
     Dates: start: 20220919, end: 20230328
  44. ATORVASTATIN [Concomitant]
     Active Substance: ATORVASTATIN
     Dosage: 40 MILLIGRAM, QD (QN)
     Route: 048
     Dates: start: 20220919
  45. CHOLECALCIFEROL [Concomitant]
     Active Substance: CHOLECALCIFEROL
     Indication: Supplementation therapy
     Dosage: 1000 INTERNATIONAL UNIT, QD
     Route: 048
     Dates: start: 20220919
  46. ASCORBIC ACID\FERROUS SULFATE [Concomitant]
     Active Substance: ASCORBIC ACID\FERROUS SULFATE
     Indication: Supplementation therapy
     Dosage: 1 DOSAGE FORM (TABLET), QOD
     Route: 048
     Dates: start: 20220919
  47. FILGRASTIM [Concomitant]
     Active Substance: FILGRASTIM
     Indication: Neutrophil count decreased
     Dosage: 300 MICROGRAM, SINGLE
     Route: 058
     Dates: start: 20221114, end: 20221114
  48. FILGRASTIM [Concomitant]
     Active Substance: FILGRASTIM
     Dosage: 300 MICROGRAM, SINGLE
     Route: 058
     Dates: start: 20221116, end: 20221116
  49. FILGRASTIM [Concomitant]
     Active Substance: FILGRASTIM
     Dosage: 300 MICROGRAM, SINGLE
     Route: 058
     Dates: start: 20221122, end: 20221122
  50. IMMUNE GLOBULIN NOS [Concomitant]
     Active Substance: IMMUNE GLOBULIN NOS
     Indication: Hypogammaglobulinaemia
     Dosage: 22.5 GRAM, QM
     Route: 042
     Dates: start: 20220501, end: 20221017
  51. IMMUNE GLOBULIN NOS [Concomitant]
     Active Substance: IMMUNE GLOBULIN NOS
     Dosage: 22.5 GRAM, QM
     Route: 042
     Dates: start: 20230414
  52. MAGNESIUM [Concomitant]
     Active Substance: MAGNESIUM
     Indication: Supplementation therapy
     Dosage: 1 DOSAGE FORM (TABLET), BID
     Route: 048
     Dates: start: 20220919
  53. METOPROLOL [Concomitant]
     Active Substance: METOPROLOL
     Indication: Sinus node dysfunction
     Dosage: 25 MILLIGRAM, BID
     Route: 048
     Dates: start: 20220919
  54. MOLNUPIRAVIR [Concomitant]
     Active Substance: MOLNUPIRAVIR
     Indication: COVID-19
     Dosage: 800 MILLIGRAM, BID
     Route: 048
     Dates: start: 20230320, end: 20230324
  55. PANTOPRAZOLE [Concomitant]
     Active Substance: PANTOPRAZOLE
     Indication: Prophylaxis
     Dosage: 40 MILLIGRAM, QD
     Route: 048
     Dates: start: 2020
  56. POTASSIUM CHLORIDE [Concomitant]
     Active Substance: POTASSIUM CHLORIDE
     Indication: Supplementation therapy
     Dosage: 1 DOSAGE FORM (TABLET), BID
     Route: 048
     Dates: start: 20220919
  57. SULFAMETHOXAZOLE\TRIMETHOPRIM [Concomitant]
     Active Substance: SULFAMETHOXAZOLE\TRIMETHOPRIM
     Indication: Prophylaxis
     Dosage: 200/40 MG, BID
     Route: 048
     Dates: start: 20220919
  58. THIAMINE [Concomitant]
     Active Substance: THIAMINE
     Indication: Decreased appetite
     Dosage: 100 MILLIGRAM, QD
     Route: 048
     Dates: start: 20211202
  59. VALACYCLOVIR HYDROCHLORIDE [Concomitant]
     Active Substance: VALACYCLOVIR HYDROCHLORIDE
     Indication: Prophylaxis
     Dosage: 500 MILLIGRAM, BID
     Route: 048
     Dates: start: 2019

REACTIONS (1)
  - Pneumonia haemophilus [Recovering/Resolving]

NARRATIVE: CASE EVENT DATE: 20221023
